FAERS Safety Report 7888656-2 (Version None)
Quarter: 2011Q4

REPORT INFORMATION
  Report Type: 
  Country: None (occurrence: None)
  Receive Date: 20111103
  Receipt Date: 20111101
  Transmission Date: 20120403
  Serious: Yes (Other)
  Sender: FDA-Public Use
  Company Number: GB-ROCHE-1008745

PATIENT
  Age: 16 Year
  Sex: Female

DRUGS (13)
  1. PULMOZYME [Suspect]
     Indication: CYSTIC FIBROSIS
  2. CEFIXIME [Concomitant]
  3. TOBRAMYCIN [Concomitant]
  4. LEVEMIR [Concomitant]
  5. VENTOLIN [Concomitant]
  6. CREON [Concomitant]
  7. VITAMINS A, D AND E [Concomitant]
  8. FLUTICASONE PROPIONATE [Concomitant]
  9. CEFTAZIDIME [Concomitant]
     Route: 042
  10. ACETAMINOPHEN [Concomitant]
  11. AZITHROMYCIN [Concomitant]
  12. OMEPRAZOLE [Concomitant]
  13. VITAMIN E [Concomitant]

REACTIONS (2)
  - DYSPHONIA [None]
  - OROPHARYNGEAL PAIN [None]
